FAERS Safety Report 10478698 (Version 1)
Quarter: 2014Q3

REPORT INFORMATION
  Report Type: Spontaneous
  Country: ES (occurrence: ES)
  Receive Date: 20140926
  Receipt Date: 20140926
  Transmission Date: 20150326
  Serious: Yes (Other)
  Sender: FDA-Public Use
  Company Number: PHHY2014ES122755

PATIENT
  Age: 61 Year
  Sex: Male

DRUGS (1)
  1. PIPERACILLIN AND TAZOBACTAM [Suspect]
     Active Substance: PIPERACILLIN SODIUM\TAZOBACTAM SODIUM
     Indication: BILIARY TRACT OPERATION

REACTIONS (9)
  - Eosinophilic pneumonia acute [Recovering/Resolving]
  - Eosinophilia [Recovered/Resolved]
  - Leukocytosis [Recovering/Resolving]
  - Dyspnoea [Recovering/Resolving]
  - Cough [Recovering/Resolving]
  - Productive cough [Recovering/Resolving]
  - Hypoxia [Recovering/Resolving]
  - Pyrexia [Recovered/Resolved]
  - Respiratory failure [Recovering/Resolving]
